FAERS Safety Report 14781516 (Version 1)
Quarter: 2018Q2

REPORT INFORMATION
  Report Type: Report from Study
  Country: IE (occurrence: IE)
  Receive Date: 20180420
  Receipt Date: 20180420
  Transmission Date: 20180711
  Serious: Yes (Hospitalization)
  Sender: FDA-Public Use
  Company Number: IE-AMGEN-IRLSL2018052416

PATIENT
  Age: 57 Year
  Sex: Female

DRUGS (6)
  1. NEULASTA [Suspect]
     Active Substance: PEGFILGRASTIM
     Indication: PRODUCT USED FOR UNKNOWN INDICATION
     Dosage: 6 MG, Q2WK, POST CHEMO
     Route: 058
  2. EMEND [Concomitant]
     Active Substance: APREPITANT
     Dosage: 80 MG, QD
     Route: 050
  3. NEXIUM [Concomitant]
     Active Substance: ESOMEPRAZOLE MAGNESIUM
     Dosage: 40 MG, QD
     Route: 050
  4. TRAMADOL. [Concomitant]
     Active Substance: TRAMADOL
     Dosage: 50 MG, AS NECESSARY
     Route: 050
  5. MYCOSTATIN [Concomitant]
     Active Substance: NYSTATIN
     Dosage: 10 ML, QID
     Route: 050
  6. DEXAMETHASONE. [Concomitant]
     Active Substance: DEXAMETHASONE
     Dosage: 4 MG, BID
     Route: 050

REACTIONS (3)
  - Epistaxis [Recovered/Resolved]
  - Gingival bleeding [Recovered/Resolved]
  - Bone pain [Recovered/Resolved]

NARRATIVE: CASE EVENT DATE: 20180328
